FAERS Safety Report 19217171 (Version 2)
Quarter: 2021Q2

REPORT INFORMATION
  Report Type: Spontaneous
  Country: JP (occurrence: JP)
  Receive Date: 20210505
  Receipt Date: 20210615
  Transmission Date: 20210717
  Serious: Yes (Life-Threatening, Hospitalization, Disabling, Other)
  Sender: FDA-Public Use
  Company Number: JP-AMGEN-JPNSP2021065265

PATIENT
  Age: 70 Year
  Sex: Female
  Weight: 66 kg

DRUGS (1)
  1. EVENITY [Suspect]
     Active Substance: ROMOSOZUMAB-AQQG
     Indication: OSTEOPOROSIS
     Dosage: 210 MILLIGRAM, QMO
     Route: 058
     Dates: start: 20200709, end: 20210419

REACTIONS (6)
  - Cerebral infarction [Recovered/Resolved with Sequelae]
  - Thoracic vertebral fracture [Not Recovered/Not Resolved]
  - Pulmonary embolism [Not Recovered/Not Resolved]
  - Deep vein thrombosis [Not Recovered/Not Resolved]
  - Arterial occlusive disease [Recovered/Resolved with Sequelae]
  - Lumbar spinal stenosis [Not Recovered/Not Resolved]

NARRATIVE: CASE EVENT DATE: 202008
